FAERS Safety Report 6302479-7 (Version None)
Quarter: 2009Q3

REPORT INFORMATION
  Report Type: 
  Country: None (occurrence: None)
  Receive Date: 20090810
  Receipt Date: 20090729
  Transmission Date: 20100115
  Serious: Yes (Death)
  Sender: FDA-Public Use
  Company Number: US-ROCHE-633193

PATIENT
  Age: 33 Year
  Sex: Female

DRUGS (1)
  1. OSELTAMIVIR [Suspect]
     Route: 065
     Dates: start: 20090428

REACTIONS (2)
  - ACUTE RESPIRATORY DISTRESS SYNDROME [None]
  - PNEUMONIA VIRAL [None]
